FAERS Safety Report 5276958-8 (Version None)
Quarter: 2007Q1

REPORT INFORMATION
  Report Type: 
  Country: None (occurrence: None)
  Receive Date: 20070327
  Receipt Date: 20070313
  Transmission Date: 20070707
  Serious: Yes (Death)
  Sender: FDA-Public Use
  Company Number: HQWYE222109MAR07

PATIENT
  Sex: Female
  Weight: 56 kg

DRUGS (20)
  1. ENBREL [Suspect]
     Indication: RHEUMATOID ARTHRITIS
     Route: 058
     Dates: start: 20050801, end: 20070219
  2. PREDONINE [Concomitant]
     Indication: RHEUMATOID ARTHRITIS
     Route: 048
     Dates: end: 20070219
  3. ALFAROL [Concomitant]
     Dosage: UNKNOWN
     Route: 048
  4. TAKEPRON [Concomitant]
     Indication: GASTRIC ULCER
     Route: 048
     Dates: end: 20070219
  5. GASLON [Concomitant]
     Indication: GASTRIC ULCER
     Route: 048
     Dates: end: 20070219
  6. DIOVAN [Concomitant]
     Dosage: UNKNOWN
  7. AMLODIN [Concomitant]
     Indication: HYPERTENSION
     Route: 048
     Dates: end: 20070219
  8. NABOAL - SLOW RELEASE [Concomitant]
     Indication: RHEUMATOID ARTHRITIS
     Route: 048
     Dates: end: 20070219
  9. HALCION [Concomitant]
     Indication: INSOMNIA
     Route: 048
     Dates: end: 20070219
  10. PURSENNID [Concomitant]
     Indication: CONSTIPATION
     Route: 048
     Dates: end: 20070219
  11. JUVELA NICOTINATE [Concomitant]
     Indication: PERIPHERAL VASCULAR DISORDER
     Route: 048
     Dates: end: 20070219
  12. DORNER [Concomitant]
     Indication: PERIPHERAL VASCULAR DISORDER
     Route: 048
     Dates: end: 20070219
  13. MUCOSOLVAN [Concomitant]
     Indication: PRODUCTIVE COUGH
     Route: 048
     Dates: end: 20070219
  14. BONALON [Concomitant]
     Indication: OSTEOPOROSIS
     Route: 048
     Dates: end: 20070219
  15. MAGNESIUM OXIDE [Concomitant]
     Indication: CONSTIPATION
     Route: 048
     Dates: end: 20070219
  16. ADOFEED [Concomitant]
     Indication: RHEUMATOID ARTHRITIS
     Dosage: UNKNOWN
     Dates: end: 20070219
  17. KETOPROFEN [Concomitant]
     Indication: RHEUMATOID ARTHRITIS
     Dosage: UNKNOWN
     Dates: end: 20070219
  18. PREDNISOLONE [Concomitant]
     Indication: RHEUMATOID ARTHRITIS
     Dosage: UNKNOWN
     Route: 061
     Dates: end: 20070219
  19. RHEUMATREX [Concomitant]
     Indication: RHEUMATOID ARTHRITIS
     Route: 048
  20. RHEUMATREX [Concomitant]
     Route: 048
     Dates: start: 20020618, end: 20050915

REACTIONS (12)
  - ASCITES [None]
  - CACHEXIA [None]
  - CARDIAC FAILURE [None]
  - CONDITION AGGRAVATED [None]
  - DYSPNOEA [None]
  - INTERSTITIAL LUNG DISEASE [None]
  - METASTASES TO BLADDER [None]
  - METASTASES TO LYMPH NODES [None]
  - METASTASES TO UTERUS [None]
  - NEUROENDOCRINE CARCINOMA [None]
  - OEDEMA PERIPHERAL [None]
  - OVARIAN CANCER [None]
